FAERS Safety Report 23638258 (Version 1)
Quarter: 2024Q1

REPORT INFORMATION
  Report Type: Spontaneous
  Country: US (occurrence: None)
  Receive Date: 20240315
  Receipt Date: 20240315
  Transmission Date: 20240409
  Serious: Yes (Hospitalization)
  Sender: FDA-Public Use
  Company Number: None

PATIENT
  Age: 33 Year
  Sex: Female
  Weight: 118.5 kg

DRUGS (2)
  1. SEMAGLUTIDE [Suspect]
     Active Substance: SEMAGLUTIDE
     Indication: Type 2 diabetes mellitus
     Dosage: 14 MG DAILY ORAL
     Route: 048
     Dates: start: 20240207, end: 20240313
  2. LITHIUM [Suspect]
     Active Substance: LITHIUM
     Dates: start: 20240313, end: 20240313

REACTIONS (5)
  - Nausea [None]
  - Vomiting [None]
  - Dizziness [None]
  - Tremor [None]
  - Antipsychotic drug level increased [None]

NARRATIVE: CASE EVENT DATE: 20240313
